FAERS Safety Report 9012939 (Version 1)
Quarter: 2013Q1

REPORT INFORMATION
  Report Type: Spontaneous
  Country: US (occurrence: US)
  Receive Date: 20130114
  Receipt Date: 20130114
  Transmission Date: 20140127
  Serious: Yes (Other)
  Sender: FDA-Public Use
  Company Number: US-GLAXOSMITHKLINE-A1007416A

PATIENT
  Age: 72 Year
  Sex: Female

DRUGS (6)
  1. VENTOLIN HFA [Suspect]
     Indication: SINUSITIS
     Dosage: 1PUFF PER DAY
     Route: 055
     Dates: start: 20130103, end: 20130105
  2. DILTIAZEM HCL [Concomitant]
  3. HYDROCODONE + ACETAMINOPHEN [Concomitant]
  4. OMEPRAZOLE [Concomitant]
  5. LORAZEPAM [Concomitant]
  6. SYNTHROID [Concomitant]

REACTIONS (5)
  - Atrial fibrillation [Recovered/Resolved]
  - Nervousness [Recovered/Resolved]
  - Asthenia [Recovered/Resolved]
  - Somnolence [Recovered/Resolved]
  - Heart rate increased [Recovered/Resolved]
